FAERS Safety Report 6131759-3 (Version None)
Quarter: 2009Q1

REPORT INFORMATION
  Report Type: 
  Country: None (occurrence: None)
  Receive Date: 20090325
  Receipt Date: 20090319
  Transmission Date: 20090719
  Serious: Yes (Hospitalization)
  Sender: FDA-Public Use
  Company Number: US-BIOGENIDEC-2009BI004008

PATIENT
  Age: 25 Year
  Sex: Female

DRUGS (2)
  1. AVONEX [Suspect]
     Indication: MULTIPLE SCLEROSIS
     Route: 030
     Dates: start: 20010601, end: 20020101
  2. AVONEX [Suspect]
     Route: 030
     Dates: start: 20061204

REACTIONS (2)
  - CEREBROVASCULAR ACCIDENT [None]
  - GASTROENTERITIS SALMONELLA [None]
